FAERS Safety Report 22033825 (Version 1)
Quarter: 2023Q1

REPORT INFORMATION
  Report Type: Spontaneous
  Country: IT (occurrence: IT)
  Receive Date: 20230224
  Receipt Date: 20230224
  Transmission Date: 20230417
  Serious: Yes (Other)
  Sender: FDA-Public Use
  Company Number: IT-MYLANLABS-2023M1019949

PATIENT
  Sex: Female

DRUGS (2)
  1. LYRICA [Suspect]
     Active Substance: PREGABALIN
     Indication: Anxiety
     Dosage: UNK
     Route: 065
  2. LYRICA [Suspect]
     Active Substance: PREGABALIN
     Indication: Fibromyalgia

REACTIONS (7)
  - Dysentery [Unknown]
  - Abdominal pain [Unknown]
  - Decreased appetite [Unknown]
  - Rash [Unknown]
  - Dizziness [Unknown]
  - Anxiety [Unknown]
  - Drug ineffective [Unknown]
